FAERS Safety Report 11728968 (Version 1)
Quarter: 2015Q4

REPORT INFORMATION
  Report Type: Spontaneous
  Country: US (occurrence: US)
  Receive Date: 20151112
  Receipt Date: 20151112
  Transmission Date: 20160304
  Serious: Yes (Hospitalization)
  Sender: FDA-Public Use
  Company Number: US-JNJFOC-20151112562

PATIENT
  Age: 71 Year
  Sex: Male

DRUGS (3)
  1. RITUXAN [Concomitant]
     Active Substance: RITUXIMAB
     Indication: WALDENSTROM^S MACROGLOBULINAEMIA
     Dates: start: 201510
  2. IMBRUVICA [Suspect]
     Active Substance: IBRUTINIB
     Indication: WALDENSTROM^S MACROGLOBULINAEMIA
     Route: 048
     Dates: start: 201510
  3. MORNIFLUMATE [Concomitant]
     Active Substance: MORNIFLUMATE
     Indication: POLLAKIURIA

REACTIONS (4)
  - Pneumonia [Recovering/Resolving]
  - Balance disorder [Recovered/Resolved]
  - Peripheral swelling [Recovered/Resolved]
  - Blood potassium decreased [Recovered/Resolved]

NARRATIVE: CASE EVENT DATE: 20151103
